FAERS Safety Report 10061641 (Version 1)
Quarter: 2014Q2

REPORT INFORMATION
  Report Type: Spontaneous
  Country: US (occurrence: None)
  Receive Date: 20140403
  Receipt Date: 20140403
  Transmission Date: 20141212
  Serious: Yes (Other)
  Sender: FDA-Public Use
  Company Number: VAL_03058_2014

PATIENT
  Age: 30 Year
  Sex: 0

DRUGS (1)
  1. BASOFORTINA [Suspect]
     Indication: HAEMOPHILIA
     Dosage: DF, AMPOULE

REACTIONS (2)
  - Thrombocytopenia [None]
  - General physical health deterioration [None]
